FAERS Safety Report 10241073 (Version 1)
Quarter: 2014Q2

REPORT INFORMATION
  Report Type: Spontaneous
  Country: JP (occurrence: JP)
  Receive Date: 20140617
  Receipt Date: 20140617
  Transmission Date: 20141212
  Serious: Yes (Hospitalization)
  Sender: FDA-Public Use
  Company Number: JP-PERRIGO-14JP005858

PATIENT
  Age: 48 Year
  Sex: Female

DRUGS (1)
  1. MESALAMINE RX 66.667 MG/ML 2N9 [Suspect]
     Indication: COLITIS ULCERATIVE
     Dosage: UNKNOWN, UNKNOWN
     Route: 054

REACTIONS (3)
  - Rectal perforation [Recovered/Resolved]
  - Anal abscess [Recovered/Resolved]
  - Wrong technique in drug usage process [Unknown]
